FAERS Safety Report 7786422-X (Version None)
Quarter: 2011Q3

REPORT INFORMATION
  Report Type: 
  Country: None (occurrence: None)
  Receive Date: 20110927
  Receipt Date: 20110915
  Transmission Date: 20111222
  Serious: Yes (Hospitalization, Disabling, Other)
  Sender: FDA-Public Use
  Company Number: 2011SP033838

PATIENT
  Age: 43 Year
  Sex: Male
  Weight: 95 kg

DRUGS (8)
  1. RADIOTHERAPY [Concomitant]
  2. TEMODAL [Suspect]
     Indication: GLIOBLASTOMA
     Dosage: 300;400 MG, QD, PO
     Route: 048
     Dates: start: 20110101, end: 20110101
  3. TEMODAL [Suspect]
     Indication: GLIOBLASTOMA
     Dosage: 300;400 MG, QD, PO
     Route: 048
     Dates: start: 20110325
  4. TEMODAL [Suspect]
     Indication: GLIOBLASTOMA
     Dosage: 300;400 MG, QD, PO
     Route: 048
     Dates: start: 20110620
  5. TEMODAL [Suspect]
     Indication: GLIOBLASTOMA
     Dosage: 300;400 MG, QD, PO
     Route: 048
     Dates: start: 20110521
  6. TEMODAL [Suspect]
     Indication: GLIOBLASTOMA
     Dosage: 300;400 MG, QD, PO
     Route: 048
     Dates: end: 20110701
  7. TEMODAL [Suspect]
     Indication: GLIOBLASTOMA
     Dosage: 300;400 MG, QD, PO
     Route: 048
     Dates: start: 20110423
  8. PREDNISOLONE [Concomitant]

REACTIONS (9)
  - BALANCE DISORDER [None]
  - TACHYCARDIA [None]
  - PHLEBITIS [None]
  - INSOMNIA [None]
  - HEMIPARESIS [None]
  - BRAIN OEDEMA [None]
  - HYPOKALAEMIA [None]
  - INCONTINENCE [None]
  - PARALYSIS FLACCID [None]
